FAERS Safety Report 7889528-X (Version None)
Quarter: 2011Q4

REPORT INFORMATION
  Report Type: 
  Country: None (occurrence: None)
  Receive Date: 20111103
  Receipt Date: 20100512
  Transmission Date: 20120403
  Serious: No
  Sender: FDA-Public Use
  Company Number: US-BRISTOL-MYERS SQUIBB COMPANY-15102031

PATIENT

DRUGS (1)
  1. KENALOG-40 [Suspect]

REACTIONS (2)
  - DIZZINESS [None]
  - HYPERHIDROSIS [None]
